FAERS Safety Report 22101169 (Version 3)
Quarter: 2023Q2

REPORT INFORMATION
  Report Type: Report from Study
  Country: CA (occurrence: CA)
  Receive Date: 20230316
  Receipt Date: 20230614
  Transmission Date: 20230721
  Serious: Yes (Hospitalization, Other)
  Sender: FDA-Public Use
  Company Number: CA-JNJFOC-20220943052

PATIENT
  Age: 73 Year
  Sex: Female

DRUGS (2)
  1. REMICADE [Suspect]
     Active Substance: INFLIXIMAB
     Indication: Crohn^s disease
     Dosage: EXPIRY DATE: 30-SEP-2025
     Route: 042
  2. REMICADE [Suspect]
     Active Substance: INFLIXIMAB
     Dosage: 400MG AT WEEK 0 AND 4 FOLLOWED BY REGULAR MAINTENANCE OF 400MG Q8WEEKS.
     Route: 042

REACTIONS (7)
  - Dementia [Unknown]
  - Central venous catheterisation [Unknown]
  - Intentional product misuse [Unknown]
  - Somnolence [Unknown]
  - COVID-19 [Recovered/Resolved]
  - Poor venous access [Unknown]
  - Off label use [Unknown]

NARRATIVE: CASE EVENT DATE: 20220101
